FAERS Safety Report 4325772-6 (Version None)
Quarter: 2004Q1

REPORT INFORMATION
  Report Type: 
  Country: None (occurrence: None)
  Receive Date: 20040323
  Receipt Date: 20040310
  Transmission Date: 20041129
  Serious: Yes (Hospitalization)
  Sender: FDA-Public Use
  Company Number: 2004UW02844

PATIENT
  Age: 41 Year
  Sex: Male

DRUGS (6)
  1. SEROQUEL [Suspect]
     Indication: ANXIETY
     Dosage: 25 TO 75 MG PER DAY
     Dates: start: 20040128, end: 20040201
  2. SEROQUEL [Suspect]
     Indication: DEPRESSION
     Dosage: 25 TO 75 MG PER DAY
     Dates: start: 20040128, end: 20040201
  3. NEURONTIN [Concomitant]
  4. LEXAPRO [Concomitant]
  5. PAMELOR [Concomitant]
  6. ULTRAM [Concomitant]

REACTIONS (1)
  - STATUS EPILEPTICUS [None]
